FAERS Safety Report 4714382-4 (Version None)
Quarter: 2005Q3

REPORT INFORMATION
  Report Type: 
  Country: None (occurrence: None)
  Receive Date: 20050714
  Receipt Date: 20050502
  Transmission Date: 20060218
  Serious: Yes (Hospitalization)
  Sender: FDA-Public Use
  Company Number: US-GLAXOSMITHKLINE-A0556917A

PATIENT
  Age: 18 Year
  Sex: Female
  Weight: 53.6 kg

DRUGS (3)
  1. WELLBUTRIN XL [Suspect]
     Indication: DEPRESSION
     Dosage: 900MG SINGLE DOSE
     Route: 048
     Dates: end: 20050420
  2. LEXAPRO [Suspect]
     Indication: DEPRESSION
     Route: 048
     Dates: start: 20050420, end: 20050504
  3. NO CONCURRENT MEDICATION [Concomitant]

REACTIONS (12)
  - ANXIETY [None]
  - CONVULSION [None]
  - DISCOMFORT [None]
  - FATIGUE [None]
  - HEART RATE INCREASED [None]
  - HYPOAESTHESIA [None]
  - INTENTIONAL MISUSE [None]
  - MUSCLE CONTRACTURE [None]
  - PARAESTHESIA [None]
  - POSTURE ABNORMAL [None]
  - SUICIDE ATTEMPT [None]
  - TREMOR [None]
